FAERS Safety Report 21674187 (Version 2)
Quarter: 2022Q4

REPORT INFORMATION
  Report Type: Spontaneous
  Country: US (occurrence: US)
  Receive Date: 20221202
  Receipt Date: 20221212
  Transmission Date: 20230112
  Serious: No
  Sender: FDA-Public Use
  Company Number: US-ORG100016242-2022001015

PATIENT
  Age: 67 Year
  Sex: Female
  Weight: 80 kg

DRUGS (3)
  1. ZILRETTA [Suspect]
     Active Substance: TRIAMCINOLONE ACETONIDE
     Indication: Osteoarthritis
     Dosage: ONE DOSE IN EACH KNEE
     Route: 014
     Dates: start: 20220428, end: 20220428
  2. LIDOCAINE [Concomitant]
     Active Substance: LIDOCAINE
     Indication: Product used for unknown indication
     Dosage: NOT PROVIDED
     Dates: start: 20220428, end: 20220428
  3. MARCAINE [Concomitant]
     Active Substance: BUPIVACAINE HYDROCHLORIDE
     Indication: Anaesthesia
     Dosage: 3ML COMBINED WITH EACH KNEE INJECTION
     Dates: start: 20220428, end: 20220428

REACTIONS (1)
  - Drug ineffective [Not Recovered/Not Resolved]

NARRATIVE: CASE EVENT DATE: 20220428
